FAERS Safety Report 18652251 (Version 2)
Quarter: 2020Q4

REPORT INFORMATION
  Report Type: Spontaneous
  Country: US (occurrence: US)
  Receive Date: 20201223
  Receipt Date: 20201227
  Transmission Date: 20210114
  Serious: Yes (Life-Threatening, Hospitalization)
  Sender: FDA-Public Use
  Company Number: US-JNJFOC-20201232039

PATIENT
  Age: 50 Year
  Sex: Female

DRUGS (1)
  1. IMODIUM [Suspect]
     Active Substance: LOPERAMIDE HYDROCHLORIDE
     Indication: DRUG USE DISORDER
     Route: 065

REACTIONS (4)
  - Torsade de pointes [Recovered/Resolved]
  - Hypomagnesaemia [Recovered/Resolved]
  - Self-medication [Unknown]
  - Intentional overdose [Unknown]
